FAERS Safety Report 14835938 (Version 1)
Quarter: 2018Q2

REPORT INFORMATION
  Report Type: Report from Study
  Country: US (occurrence: US)
  Receive Date: 20180502
  Receipt Date: 20180502
  Transmission Date: 20180711
  Serious: Yes (Hospitalization, Other)
  Sender: FDA-Public Use
  Company Number: US-ROCHE-1384704

PATIENT
  Age: 50 Year
  Sex: Male

DRUGS (11)
  1. GLYBURIDE. [Concomitant]
     Active Substance: GLYBURIDE
  2. LISINOPRIL. [Concomitant]
     Active Substance: LISINOPRIL
  3. PROCRIT [Concomitant]
     Active Substance: ERYTHROPOIETIN
  4. METOPROLOL. [Concomitant]
     Active Substance: METOPROLOL
  5. RANIBIZUMAB. [Suspect]
     Active Substance: RANIBIZUMAB
     Indication: DIABETIC RETINAL OEDEMA
     Dosage: EVERY 28 DAYS FOR 4 INJECTIONS THE PRN
     Route: 050
     Dates: start: 20121120, end: 20130613
  6. FUROSEMIDE. [Concomitant]
     Active Substance: FUROSEMIDE
  7. GLIBENCLAMIDE [Concomitant]
     Active Substance: GLYBURIDE
  8. CALCITRIOL. [Concomitant]
     Active Substance: CALCITRIOL
  9. CALCIUM ACETATE. [Concomitant]
     Active Substance: CALCIUM ACETATE
  10. AMLODIPINE [Concomitant]
     Active Substance: AMLODIPINE BESYLATE
  11. LEVEMIR [Concomitant]
     Active Substance: INSULIN DETEMIR

REACTIONS (6)
  - Osteomyelitis [Unknown]
  - Nephropathy [Unknown]
  - Renal failure [Unknown]
  - Abscess limb [Unknown]
  - Cellulitis [Unknown]
  - Infection [Unknown]

NARRATIVE: CASE EVENT DATE: 20130613
